FAERS Safety Report 11904739 (Version 1)
Quarter: 2016Q1

REPORT INFORMATION
  Report Type: Spontaneous
  Country: US (occurrence: US)
  Receive Date: 20160108
  Receipt Date: 20160108
  Transmission Date: 20160526
  Serious: Yes (Hospitalization)
  Sender: FDA-Public Use
  Company Number: US-ROCHE-1507451

PATIENT
  Age: 67 Year
  Sex: Female

DRUGS (6)
  1. AMIODARONE [Concomitant]
     Active Substance: AMIODARONE
     Indication: ATRIAL FIBRILLATION
  2. ACTIVASE [Suspect]
     Active Substance: ALTEPLASE
     Indication: INTRACARDIAC THROMBUS
     Dosage: ADMINISTERED IN5 MG INCREMENTS EVERY 5 MINUTES FOR A TOTAL DOSE OF 20MG AND THE FIRST DOSE WAS ADMIN
     Route: 042
  3. WARFARIN [Concomitant]
     Active Substance: WARFARIN
     Indication: ATRIAL FIBRILLATION
  4. DILTIAZEM [Concomitant]
     Active Substance: DILTIAZEM
     Indication: ATRIAL FIBRILLATION
  5. HEPARIN [Concomitant]
     Active Substance: HEPARIN SODIUM
  6. ESMOLOL [Concomitant]
     Active Substance: ESMOLOL HYDROCHLORIDE
     Indication: ATRIAL FIBRILLATION

REACTIONS (1)
  - Haemorrhage intracranial [Recovering/Resolving]
